FAERS Safety Report 14431049 (Version 1)
Quarter: 2020Q3

REPORT INFORMATION
  Report Type: Spontaneous
  Country: BE (occurrence: BE)
  Receive Date: 20180124
  Receipt Date: 20180124
  Transmission Date: 20201104
  Serious: Yes (Other)
  Sender: FDA-Public Use
  Company Number: BE-ROCHE-2055083

PATIENT
  Sex: Female

DRUGS (1)
  1. ALECTINIB. [Suspect]
     Active Substance: ALECTINIB
     Indication: NON-SMALL CELL LUNG CANCER
     Route: 065
     Dates: start: 20171221

REACTIONS (6)
  - Metastases to liver [Not Recovered/Not Resolved]
  - Hepatic pain [Unknown]
  - Anaemia [Unknown]
  - Drug ineffective [Unknown]
  - Decreased appetite [Unknown]
  - Blood lactate dehydrogenase increased [Unknown]
